FAERS Safety Report 7211803-2 (Version None)
Quarter: 2011Q1

REPORT INFORMATION
  Report Type: 
  Country: None (occurrence: None)
  Receive Date: 20110105
  Receipt Date: 20101109
  Transmission Date: 20110831
  Serious: Yes (Death, Other)
  Sender: FDA-Public Use
  Company Number: US-BAYER-201028057NA

PATIENT
  Sex: Male
  Weight: 123.64 kg

DRUGS (10)
  1. PHOSLO [Concomitant]
  2. PLENDIL [Concomitant]
  3. METRONIDAZOLE [Concomitant]
  4. COREG [Concomitant]
  5. NEPHROCAPS [Concomitant]
  6. GADOLINIUM IN UNSPECIFIED DRUG [Suspect]
     Dates: start: 20050101, end: 20050101
  7. EPOGEN [Concomitant]
  8. MAGNEVIST [Suspect]
     Dosage: 15 ML (DAILY DOSE), ONCE,
     Dates: start: 20010727, end: 20010727
  9. GADOLINIUM IN UNSPECIFIED DRUG [Suspect]
     Indication: NUCLEAR MAGNETIC RESONANCE IMAGING
     Dates: start: 20000618, end: 20000618
  10. MAGNEVIST [Suspect]
     Indication: NUCLEAR MAGNETIC RESONANCE IMAGING
     Dosage: 15 ML (DAILY DOSE), ONCE,
     Dates: start: 20000811, end: 20000811

REACTIONS (14)
  - EXTREMITY CONTRACTURE [None]
  - PAIN [None]
  - JOINT RANGE OF MOTION DECREASED [None]
  - SKIN TIGHTNESS [None]
  - SKIN INDURATION [None]
  - PARAESTHESIA [None]
  - SKIN DISCOLOURATION [None]
  - ASTHENIA [None]
  - OEDEMA PERIPHERAL [None]
  - HYPOAESTHESIA [None]
  - MUSCULOSKELETAL STIFFNESS [None]
  - NEPHROGENIC SYSTEMIC FIBROSIS [None]
  - MOBILITY DECREASED [None]
  - PRURITUS GENERALISED [None]
